FAERS Safety Report 9079195 (Version 1)
Quarter: 2013Q1

REPORT INFORMATION
  Report Type: Report from Study
  Country: US (occurrence: US)
  Receive Date: 20130130
  Receipt Date: 20130130
  Transmission Date: 20140127
  Serious: No
  Sender: FDA-Public Use
  Company Number: US-ABBOTT-12P-163-0956828-00

PATIENT
  Age: 74 Year
  Sex: Female

DRUGS (14)
  1. HUMIRA 40 MG/0.8 ML PEN [Suspect]
     Indication: CROHN^S DISEASE
     Dates: start: 20120821, end: 20120821
  2. HUMIRA 40 MG/0.8 ML PEN [Suspect]
     Dates: start: 2012
  3. ATENOLOL [Concomitant]
     Indication: BLOOD PRESSURE
  4. TRIAMTERENCE [Concomitant]
     Indication: BLOOD PRESSURE
  5. PROZAC [Concomitant]
     Indication: DEPRESSION
     Dosage: DAILY
  6. LEVOTHYROXIN [Concomitant]
     Indication: THYROID DISORDER
     Dosage: DAILY
  7. LOVASTATIN [Concomitant]
     Indication: BLOOD CHOLESTEROL INCREASED
     Dosage: DAILY
  8. ASACOL [Concomitant]
     Indication: GASTRIC DISORDER
  9. PANTOPRAZOLE [Concomitant]
     Indication: DYSPEPSIA
     Dosage: DAILY
  10. PROBIOTICS [Concomitant]
     Indication: GASTRIC DISORDER
     Dosage: DAILY
  11. VITAMIN D [Concomitant]
     Indication: PRODUCT USED FOR UNKNOWN INDICATION
  12. FOLIC ACID [Concomitant]
     Indication: PRODUCT USED FOR UNKNOWN INDICATION
  13. MULTIVITAMIN [Concomitant]
     Indication: PRODUCT USED FOR UNKNOWN INDICATION
     Dosage: DAILY
  14. AMBIEN [Concomitant]
     Indication: INSOMNIA
     Dosage: DAILY

REACTIONS (4)
  - Fatigue [Not Recovered/Not Resolved]
  - Injection site pain [Not Recovered/Not Resolved]
  - Tremor [Not Recovered/Not Resolved]
  - Injection site erythema [Not Recovered/Not Resolved]
